FAERS Safety Report 10170653 (Version 3)
Quarter: 2014Q2

REPORT INFORMATION
  Report Type: Spontaneous
  Country: JP (occurrence: JP)
  Receive Date: 20140514
  Receipt Date: 20140610
  Transmission Date: 20141212
  Serious: Yes (Other)
  Sender: FDA-Public Use
  Company Number: JP-ROCHE-1399308

PATIENT
  Age: 89 Year
  Sex: Female

DRUGS (8)
  1. MIRCERA [Suspect]
     Indication: NEPHROGENIC ANAEMIA
     Route: 058
     Dates: start: 20140407
  2. OMEPRAZOLE [Concomitant]
     Indication: GASTROOESOPHAGEAL REFLUX DISEASE
     Route: 048
     Dates: start: 20120106
  3. EVISTA [Concomitant]
     Indication: OSTEOPOROSIS
     Route: 048
     Dates: start: 20110105
  4. EDIROL [Concomitant]
     Indication: OSTEOPOROSIS
     Route: 048
     Dates: start: 20110105
  5. MAGLAX [Concomitant]
     Indication: CONSTIPATION
     Route: 048
     Dates: start: 20110524
  6. AMLODIN [Concomitant]
     Indication: HYPERTENSION
     Route: 048
     Dates: start: 1992
  7. THYRADIN-S [Concomitant]
     Indication: HYPOTHYROIDISM
     Route: 048
     Dates: start: 1992
  8. BUFFERIN (JAPAN) [Concomitant]
     Indication: CEREBRAL INFARCTION
     Route: 048
     Dates: start: 2002

REACTIONS (1)
  - Lacunar infarction [Recovering/Resolving]
